FAERS Safety Report 25585894 (Version 1)
Quarter: 2025Q3

REPORT INFORMATION
  Report Type: Spontaneous
  Country: EU (occurrence: EU)
  Receive Date: 20250721
  Receipt Date: 20250721
  Transmission Date: 20251020
  Serious: Yes (Life-Threatening)
  Sender: MYLAN
  Company Number: None

PATIENT
  Age: 52 Year
  Sex: Female
  Weight: 70 kg

DRUGS (12)
  1. PAROXETINE [Suspect]
     Active Substance: PAROXETINE
     Indication: Product used for unknown indication
  2. PAROXETINE [Suspect]
     Active Substance: PAROXETINE
     Route: 065
  3. PAROXETINE [Suspect]
     Active Substance: PAROXETINE
     Route: 065
  4. PAROXETINE [Suspect]
     Active Substance: PAROXETINE
  5. QUETIAPINE [Suspect]
     Active Substance: QUETIAPINE
     Indication: Product used for unknown indication
  6. QUETIAPINE [Suspect]
     Active Substance: QUETIAPINE
     Route: 065
  7. QUETIAPINE [Suspect]
     Active Substance: QUETIAPINE
     Route: 065
  8. QUETIAPINE [Suspect]
     Active Substance: QUETIAPINE
  9. CLONAZEPAM [Suspect]
     Active Substance: CLONAZEPAM
     Indication: Product used for unknown indication
  10. CLONAZEPAM [Suspect]
     Active Substance: CLONAZEPAM
     Route: 065
  11. CLONAZEPAM [Suspect]
     Active Substance: CLONAZEPAM
     Route: 065
  12. CLONAZEPAM [Suspect]
     Active Substance: CLONAZEPAM

REACTIONS (3)
  - Loss of consciousness [Recovered/Resolved]
  - Haematoma [Recovered/Resolved]
  - Skin odour abnormal [Recovered/Resolved]

NARRATIVE: CASE EVENT DATE: 20211226
